FAERS Safety Report 7262686-6 (Version None)
Quarter: 2011Q1

REPORT INFORMATION
  Report Type: 
  Country: None (occurrence: None)
  Receive Date: 20110130
  Receipt Date: 20100924
  Transmission Date: 20110831
  Serious: No
  Sender: FDA-Public Use
  Company Number: US-ABBOTT-10P-163-0673677-00

PATIENT
  Age: 37 Year
  Sex: Female

DRUGS (4)
  1. HUMIRA [Suspect]
     Indication: ANKYLOSING SPONDYLITIS
     Dates: start: 20100831
  2. OMEPRAZOLE [Concomitant]
     Indication: PRODUCT USED FOR UNKNOWN INDICATION
  3. EFFEXOR XR [Concomitant]
     Indication: ANXIETY
  4. ISONIAZID [Concomitant]
     Indication: TUBERCULOSIS

REACTIONS (3)
  - FLATULENCE [None]
  - DYSPEPSIA [None]
  - ABDOMINAL DISTENSION [None]
